FAERS Safety Report 8762537 (Version 1)
Quarter: 2012Q4

REPORT INFORMATION
  Report Type: 
  Country: US (occurrence: US)
  Receive Date: 20120828
  Receipt Date: 20120828
  Transmission Date: 20130627
  Serious: No
  Sender: FDA-Public Use
  Company Number: US-PFIZER INC-2012208730

PATIENT
  Age: 41 Year
  Sex: Female
  Weight: 102.95 kg

DRUGS (1)
  1. ELELYSO [Suspect]
     Indication: GAUCHER^S DISEASE
     Dosage: 6200 units, once in two weeks
     Route: 042
     Dates: start: 20120823

REACTIONS (1)
  - Headache [Recovering/Resolving]
